FAERS Safety Report 9995232 (Version 2)
Quarter: 2014Q1

REPORT INFORMATION
  Report Type: Spontaneous
  Country: US (occurrence: US)
  Receive Date: 20140311
  Receipt Date: 20140311
  Transmission Date: 20141002
  Serious: Yes (Other)
  Sender: FDA-Public Use
  Company Number: US-ROCHE-1219744

PATIENT
  Age: 72 Year
  Sex: Female
  Weight: 59.02 kg

DRUGS (8)
  1. XOLAIR [Suspect]
     Indication: ASTHMA
     Route: 058
     Dates: start: 20121227
  2. XOLAIR [Suspect]
     Route: 058
     Dates: start: 20120301
  3. MEDROL DOSEPAK [Concomitant]
  4. SINGULAIR [Concomitant]
     Indication: HYPERSENSITIVITY
  5. SINGULAIR [Concomitant]
     Indication: ASTHMA
  6. NEXIUM [Concomitant]
  7. ADVAIR [Concomitant]
     Indication: ASTHMA
  8. SYNTHROID [Concomitant]

REACTIONS (3)
  - Asthenia [Unknown]
  - Cough [Unknown]
  - Fatigue [Unknown]
